FAERS Safety Report 20739140 (Version 1)
Quarter: 2022Q2

REPORT INFORMATION
  Report Type: Spontaneous
  Country: CA (occurrence: CA)
  Receive Date: 20220422
  Receipt Date: 20220422
  Transmission Date: 20220721
  Serious: Yes (Other)
  Sender: FDA-Public Use
  Company Number: CA-TEVA-2022-CA-2028013

PATIENT
  Age: 63 Year
  Sex: Female

DRUGS (24)
  1. ETOPOSIDE [Suspect]
     Active Substance: ETOPOSIDE
     Indication: Small cell carcinoma
     Route: 042
  2. ASPIRIN [Concomitant]
     Active Substance: ASPIRIN
     Route: 065
  3. ATORVASTATIN [Concomitant]
     Active Substance: ATORVASTATIN
     Route: 048
  4. BIOTIN [Concomitant]
     Active Substance: BIOTIN
  5. CARBOPLATIN [Concomitant]
     Active Substance: CARBOPLATIN
  6. DURVALUMAB [Concomitant]
     Active Substance: DURVALUMAB
  7. ETOPOSIDE [Concomitant]
     Active Substance: ETOPOSIDE
  8. GABAPENTIN [Concomitant]
     Active Substance: GABAPENTIN
  9. GRANISETRON [Concomitant]
     Active Substance: GRANISETRON
  10. LACTULOSE [Concomitant]
     Active Substance: LACTULOSE
  11. LEVOTHYROXINE [Concomitant]
     Active Substance: LEVOTHYROXINE
     Route: 065
  12. LISDEXAMFETAMINE DIMESYLATE [Concomitant]
     Active Substance: LISDEXAMFETAMINE DIMESYLATE
  13. MIRABEGRON [Concomitant]
     Active Substance: MIRABEGRON
  14. OMEPRAZOLE [Concomitant]
     Active Substance: OMEPRAZOLE
  15. OMEPRAZOLE [Concomitant]
     Active Substance: OMEPRAZOLE
  16. ACETAMINOPHEN\OXYCODONE HYDROCHLORIDE [Concomitant]
     Active Substance: ACETAMINOPHEN\OXYCODONE HYDROCHLORIDE
  17. POLYETHYLENE GLYCOL [Concomitant]
     Active Substance: POLYETHYLENE GLYCOL
  18. ALBUTEROL [Concomitant]
     Active Substance: ALBUTEROL
  19. TOLTERODINE [Concomitant]
     Active Substance: TOLTERODINE
  20. VENLAFAXINE HYDROCHLORIDE [Concomitant]
     Active Substance: VENLAFAXINE HYDROCHLORIDE
  21. VITAMIN B12 [Concomitant]
     Active Substance: CYANOCOBALAMIN
  22. VITAMIN D [Concomitant]
     Active Substance: VITAMIN D NOS
  23. WIXELA INHUB [Concomitant]
     Active Substance: FLUTICASONE PROPIONATE\SALMETEROL XINAFOATE
     Route: 055
  24. ZOLEDRONIC ACID [Concomitant]
     Active Substance: ZOLEDRONIC ACID

REACTIONS (6)
  - Chest discomfort [Recovered/Resolved]
  - Cyanosis [Recovered/Resolved]
  - Dizziness [Recovered/Resolved]
  - Dyspnoea [Recovered/Resolved]
  - Speech disorder [Recovered/Resolved]
  - Throat tightness [Recovered/Resolved]
